FAERS Safety Report 6376592-2 (Version None)
Quarter: 2009Q3

REPORT INFORMATION
  Report Type: 
  Country: None (occurrence: None)
  Receive Date: 20090925
  Receipt Date: 20090915
  Transmission Date: 20100115
  Serious: Yes (Life-Threatening, Hospitalization)
  Sender: FDA-Public Use
  Company Number: CN-JNJFOC-20090901615

PATIENT
  Age: 19 Year
  Sex: Male

DRUGS (1)
  1. TRAMADOL HCL [Suspect]
     Indication: DRUG USE FOR UNKNOWN INDICATION
     Dosage: FIVE EMPTY PACKAGES OF 100 MG TABLETS, 12 TABLETS PER PACKAGE
     Route: 048

REACTIONS (11)
  - ACUTE RESPIRATORY DISTRESS SYNDROME [None]
  - COMA [None]
  - CONVULSION [None]
  - DRUG ABUSE [None]
  - HEPATIC ENZYME INCREASED [None]
  - INTENTIONAL OVERDOSE [None]
  - MIOSIS [None]
  - MULTI-ORGAN FAILURE [None]
  - RENAL IMPAIRMENT [None]
  - SHOCK [None]
  - SINUS TACHYCARDIA [None]
